FAERS Safety Report 19686470 (Version 1)
Quarter: 2021Q3

REPORT INFORMATION
  Report Type: Report from Study
  Country: CA (occurrence: CA)
  Receive Date: 20210811
  Receipt Date: 20210811
  Transmission Date: 20211014
  Serious: Yes (Other)
  Sender: FDA-Public Use
  Company Number: CA-JNJFOC-20210710353

PATIENT
  Age: 63 Year
  Sex: Male

DRUGS (29)
  1. COLECALCIFEROL [Concomitant]
     Active Substance: CHOLECALCIFEROL
  2. CALCIUM [Concomitant]
     Active Substance: CALCIUM
  3. HYDROXYCHLOROQUINE [Concomitant]
     Active Substance: HYDROXYCHLOROQUINE
  4. FUROSEMIDE. [Concomitant]
     Active Substance: FUROSEMIDE
  5. SPIRIVA [Concomitant]
     Active Substance: TIOTROPIUM BROMIDE MONOHYDRATE
  6. HUMALOG [Concomitant]
     Active Substance: INSULIN LISPRO
  7. CRESTOR [Concomitant]
     Active Substance: ROSUVASTATIN CALCIUM
  8. AAS [Concomitant]
     Active Substance: ASPIRIN
  9. BENADRYL [Concomitant]
     Active Substance: DIPHENHYDRAMINE HYDROCHLORIDE
     Dosage: WHEN NEEDED
  10. VENTOLIN [Concomitant]
     Active Substance: ALBUTEROL SULFATE
  11. BACLOFEN. [Concomitant]
     Active Substance: BACLOFEN
  12. POTASSIUM [Concomitant]
     Active Substance: POTASSIUM
  13. METONIA [Concomitant]
     Active Substance: METOCLOPRAMIDE
  14. ADCIRCA [Concomitant]
     Active Substance: TADALAFIL
  15. FUCIDIN [FUSIDIC ACID] [Concomitant]
     Active Substance: FUSIDIC ACID
  16. SELEXIPAG [Suspect]
     Active Substance: SELEXIPAG
     Indication: PULMONARY HYPERTENSION
     Route: 048
     Dates: start: 20210624
  17. SELEXIPAG [Suspect]
     Active Substance: SELEXIPAG
     Dosage: FOR TWO DAYS
     Route: 048
     Dates: start: 20210730
  18. MAGNESIUM [Concomitant]
     Active Substance: MAGNESIUM
  19. ESOMEPRAZOLE. [Concomitant]
     Active Substance: ESOMEPRAZOLE MAGNESIUM
  20. BASAGLAR [Concomitant]
     Active Substance: INSULIN GLARGINE
  21. CITALOPRAM [Concomitant]
     Active Substance: CITALOPRAM HYDROBROMIDE
  22. NYSTATIN. [Concomitant]
     Active Substance: NYSTATIN
  23. JANUMET [Concomitant]
     Active Substance: METFORMIN HYDROCHLORIDE\SITAGLIPTIN PHOSPHATE
  24. NEXIUM [Concomitant]
     Active Substance: ESOMEPRAZOLE MAGNESIUM
  25. SULFATRIM [Concomitant]
     Active Substance: SULFAMETHOXAZOLE\TRIMETHOPRIM
  26. VALTREX [Concomitant]
     Active Substance: VALACYCLOVIR HYDROCHLORIDE
  27. SINEMET [Concomitant]
     Active Substance: CARBIDOPA\LEVODOPA
  28. SELEXIPAG [Suspect]
     Active Substance: SELEXIPAG
     Route: 048
     Dates: start: 20210701
  29. LYRICA [Concomitant]
     Active Substance: PREGABALIN

REACTIONS (7)
  - Hyperhidrosis [Recovered/Resolved]
  - Headache [Not Recovered/Not Resolved]
  - Migraine [Recovered/Resolved]
  - Vomiting [Recovered/Resolved]
  - Diarrhoea [Recovered/Resolved]
  - Restlessness [Recovered/Resolved]
  - Overdose [Unknown]

NARRATIVE: CASE EVENT DATE: 202107
